FAERS Safety Report 21028777 (Version 1)
Quarter: 2022Q2

REPORT INFORMATION
  Report Type: Spontaneous
  Country: JP (occurrence: None)
  Receive Date: 20220630
  Receipt Date: 20220630
  Transmission Date: 20220720
  Serious: Yes (Death)
  Sender: FDA-Public Use
  Company Number: 2022A238610

PATIENT
  Age: 71 Year
  Sex: Male

DRUGS (1)
  1. ONDEXXYA [Suspect]
     Active Substance: ANDEXANET ALFA
     Indication: Haemostasis
     Dosage: DOSE UNKNOWN
     Route: 042
     Dates: start: 20220606

REACTIONS (1)
  - Acute kidney injury [Fatal]
